FAERS Safety Report 4580180-8 (Version None)
Quarter: 2005Q1

REPORT INFORMATION
  Report Type: 
  Country: None (occurrence: None)
  Receive Date: 20050211
  Receipt Date: 20050208
  Transmission Date: 20050727
  Serious: Yes (Death)
  Sender: FDA-Public Use
  Company Number: 004086

PATIENT
  Age: 19 Year
  Sex: Male

DRUGS (2)
  1. FLUOXETINE [Suspect]
     Dosage: ORAL
     Route: 048
     Dates: start: 20000101, end: 20020701
  2. PROZAC [Suspect]
     Dosage: ORAL
     Route: 048
     Dates: start: 20000101, end: 20020701

REACTIONS (1)
  - COMPLETED SUICIDE [None]
